FAERS Safety Report 20330405 (Version 4)
Quarter: 2022Q1

REPORT INFORMATION
  Report Type: Spontaneous
  Country: PT (occurrence: PT)
  Receive Date: 20220113
  Receipt Date: 20220219
  Transmission Date: 20220423
  Serious: Yes (Hospitalization, Other)
  Sender: FDA-Public Use
  Company Number: PT-AUROBINDO-AUR-APL-2022-001061

PATIENT
  Age: 65 Year
  Sex: Female

DRUGS (6)
  1. DOCETAXEL [Suspect]
     Active Substance: DOCETAXEL
     Indication: Uterine leiomyosarcoma
     Dosage: UNK UNK, FIRST CYCLE
     Route: 065
  2. DOCETAXEL [Suspect]
     Active Substance: DOCETAXEL
     Indication: Metastases to lung
  3. DOXORUBICIN [Suspect]
     Active Substance: DOXORUBICIN
     Indication: Leiomyosarcoma
     Dosage: UNK
     Route: 065
  4. GEMCITABINE [Suspect]
     Active Substance: GEMCITABINE
     Indication: Leiomyosarcoma
     Dosage: UNK UNK,FIRST CYCLE
     Route: 065
  5. GEMCITABINE [Suspect]
     Active Substance: GEMCITABINE
     Indication: Metastases to lung
     Dosage: UNK
     Route: 065
  6. TRABECTEDIN [Concomitant]
     Active Substance: TRABECTEDIN
     Indication: Leiomyosarcoma
     Dosage: UNK
     Route: 065

REACTIONS (7)
  - Pancytopenia [Unknown]
  - Renal impairment [Unknown]
  - Hepatic function abnormal [Unknown]
  - Hepatic failure [Unknown]
  - Renal failure [Unknown]
  - Off label use [Unknown]
  - Product use in unapproved indication [Unknown]
